FAERS Safety Report 5841822-X (Version None)
Quarter: 2008Q3

REPORT INFORMATION
  Report Type: 
  Country: None (occurrence: None)
  Receive Date: 20080812
  Receipt Date: 20080807
  Transmission Date: 20090109
  Serious: Yes (Hospitalization)
  Sender: FDA-Public Use
  Company Number: B0496501A

PATIENT
  Age: 57 Year
  Sex: Male
  Weight: 96 kg

DRUGS (5)
  1. LAPATINIB [Suspect]
     Indication: SQUAMOUS CELL CARCINOMA
     Dosage: 500MG PER DAY
     Route: 048
     Dates: start: 20071030, end: 20071114
  2. CISPLATIN [Suspect]
     Indication: SQUAMOUS CELL CARCINOMA
     Dosage: 150MG PER DAY
     Route: 042
     Dates: start: 20071030, end: 20071030
  3. DOCETAXEL [Suspect]
     Indication: SQUAMOUS CELL CARCINOMA
     Dosage: 120MG PER DAY
     Route: 042
     Dates: start: 20071030, end: 20071030
  4. FLUOROURACIL [Suspect]
     Indication: SQUAMOUS CELL CARCINOMA
     Dosage: 1500MG PER DAY
     Route: 042
     Dates: start: 20071030, end: 20071104
  5. AMLODIPINE [Suspect]
     Indication: HYPERTENSION
     Dosage: 10MG PER DAY
     Route: 048
     Dates: start: 20060901

REACTIONS (2)
  - DIARRHOEA [None]
  - RENAL FAILURE [None]
